FAERS Safety Report 10973651 (Version 1)
Quarter: 2015Q2

REPORT INFORMATION
  Report Type: Spontaneous
  Country: US (occurrence: US)
  Receive Date: 20150401
  Receipt Date: 20150401
  Transmission Date: 20150821
  Serious: No
  Sender: FDA-Public Use
  Company Number: US-ASTRAZENECA-2015SE27794

PATIENT
  Age: 15985 Day
  Sex: Male
  Weight: 83.9 kg

DRUGS (2)
  1. VENTOLIN [Concomitant]
     Active Substance: ALBUTEROL SULFATE
  2. SYMBICORT [Suspect]
     Active Substance: BUDESONIDE\FORMOTEROL FUMARATE DIHYDRATE
     Indication: ASTHMA
     Dosage: 160 4.5 MG TWO PUFFS IN THE AM TWO PUFFS IN THE PM,TWO TIMES A DAY
     Route: 055
     Dates: start: 20150217

REACTIONS (4)
  - Intentional product misuse [Unknown]
  - Throat irritation [Unknown]
  - Laryngitis [Recovered/Resolved]
  - Dysphagia [Unknown]

NARRATIVE: CASE EVENT DATE: 20150217
